FAERS Safety Report 7307874-5 (Version None)
Quarter: 2011Q1

REPORT INFORMATION
  Report Type: 
  Country: None (occurrence: None)
  Receive Date: 20110223
  Receipt Date: 20110218
  Transmission Date: 20110831
  Serious: Yes (Death, Other)
  Sender: FDA-Public Use
  Company Number: DK-SANOFI-AVENTIS-2011SA010637

PATIENT

DRUGS (3)
  1. OXALIPLATIN [Suspect]
  2. CAPECITABINE [Suspect]
  3. DOCETAXEL [Suspect]

REACTIONS (4)
  - NEUTROPENIA [None]
  - FEBRILE NEUTROPENIA [None]
  - NEUROPATHY PERIPHERAL [None]
  - SEPSIS [None]
